FAERS Safety Report 5147364-1 (Version None)
Quarter: 2006Q4

REPORT INFORMATION
  Report Type: 
  Country: None (occurrence: None)
  Receive Date: 20061102
  Receipt Date: 20061030
  Transmission Date: 20070319
  Serious: No
  Sender: FDA-Public Use
  Company Number: HQWYE456102OCT06

PATIENT
  Age: 28 Year
  Sex: Female

DRUGS (2)
  1. TYGACIL [Suspect]
     Indication: UROSEPSIS
     Dosage: INTRAVENOUS
     Route: 042
  2. AMIKACIN [Concomitant]

REACTIONS (4)
  - BACTERAEMIA [None]
  - BLOOD CULTURE POSITIVE [None]
  - CULTURE URINE POSITIVE [None]
  - PATHOGEN RESISTANCE [None]
